FAERS Safety Report 15107245 (Version 2)
Quarter: 2018Q3

REPORT INFORMATION
  Report Type: Report from Study
  Country: TH (occurrence: TH)
  Receive Date: 20180704
  Receipt Date: 20180927
  Transmission Date: 20181010
  Serious: Yes (Other)
  Sender: FDA-Public Use
  Company Number: TH-VIIV HEALTHCARE LIMITED-TH2018GSK117136

PATIENT
  Age: 28 Year
  Sex: Male
  Weight: 60.3 kg

DRUGS (5)
  1. ABACAVIR SULPHATE [Suspect]
     Active Substance: ABACAVIR
     Indication: ACUTE HIV INFECTION
     Dosage: 300 MG, UNK
     Route: 048
     Dates: start: 20170830
  2. LAMIVUDINE. [Suspect]
     Active Substance: LAMIVUDINE
     Indication: ACUTE HIV INFECTION
     Dosage: 300 MG, UNK
     Route: 048
     Dates: start: 20170830
  3. MARAVIROC [Suspect]
     Active Substance: MARAVIROC
     Indication: ACUTE HIV INFECTION
     Dosage: 600 MG, UNK
     Route: 048
     Dates: start: 20170730
  4. DOLUTEGRAVIR [Suspect]
     Active Substance: DOLUTEGRAVIR
     Indication: ACUTE HIV INFECTION
     Dosage: 50 MG, QD
     Route: 048
     Dates: start: 20170730, end: 20180701
  5. HEPATITIS A VACCINE [Concomitant]
     Active Substance: HEPATITIS A VIRUS STRAIN HM175 ANTIGEN (FORMALDEHYDE INACTIVATED)
     Dosage: UNK, SINGLE
     Route: 042
     Dates: start: 20180623, end: 20180623

REACTIONS (1)
  - Hepatitis A [Recovered/Resolved]

NARRATIVE: CASE EVENT DATE: 20180626
